FAERS Safety Report 21921461 (Version 2)
Quarter: 2023Q1

REPORT INFORMATION
  Report Type: Spontaneous
  Country: PT (occurrence: PT)
  Receive Date: 20230127
  Receipt Date: 20230213
  Transmission Date: 20230417
  Serious: Yes (Death, Other)
  Sender: FDA-Public Use
  Company Number: None

PATIENT
  Sex: Female

DRUGS (3)
  1. AVIBACTAM SODIUM\CEFTAZIDIME [Suspect]
     Active Substance: AVIBACTAM SODIUM\CEFTAZIDIME
     Indication: Device related infection
     Dosage: 2.5 G, TID
     Route: 042
     Dates: start: 20221222, end: 20230112
  2. VANCOMICINA NORMON [Concomitant]
     Indication: Device related infection
     Dosage: 1250 MG, BID
     Route: 042
     Dates: start: 20230103, end: 20230109
  3. VANCOMICINA NORMON [Concomitant]
     Dosage: 2000 MG, SINGLE
     Route: 042
     Dates: start: 20230102, end: 20230102

REACTIONS (3)
  - Skin exfoliation [Unknown]
  - Rash maculo-papular [Fatal]
  - Off label use [Unknown]

NARRATIVE: CASE EVENT DATE: 20221222
